FAERS Safety Report 9223346 (Version 3)
Quarter: 2013Q2

REPORT INFORMATION
  Report Type: Spontaneous
  Country: US (occurrence: US)
  Receive Date: 20130410
  Receipt Date: 20130521
  Transmission Date: 20140414
  Serious: Yes (Hospitalization)
  Sender: FDA-Public Use
  Company Number: US-PFIZER INC-2013109078

PATIENT
  Sex: Female

DRUGS (14)
  1. PREMARIN [Suspect]
     Indication: VULVOVAGINAL DRYNESS
     Dosage: UNK
     Route: 067
     Dates: end: 2013
  2. PREMARIN [Suspect]
     Indication: VAGINAL INFECTION
  3. BENICAR [Concomitant]
     Indication: BLOOD PRESSURE ABNORMAL
     Dosage: 20 MG, 1X/DAY
  4. AMLODIPINE [Concomitant]
     Indication: BLOOD PRESSURE ABNORMAL
     Dosage: 5 MG, 1X/DAY
  5. PLAVIX [Concomitant]
     Dosage: 75 MG, 1X/DAY
  6. SPIRONOLACTONE [Concomitant]
     Indication: DIURETIC THERAPY
     Dosage: 25 MG, 1X/DAY
  7. CALCIUM MAGNESIUM ZINC [Concomitant]
     Dosage: 1000 MG, 1X/DAY
  8. VITAMIN D [Concomitant]
     Dosage: 100 MG, 1X/DAY
  9. SYNTHROID [Concomitant]
     Dosage: 0.15 MG, 1X/DAY
  10. PREVACID [Concomitant]
     Dosage: 15 MG, 2X/DAY
  11. PAROXETINE [Concomitant]
     Dosage: 20 MG, 1X/DAY
  12. MIRALAX [Concomitant]
     Dosage: UNK
  13. ATORVASTATIN CALCIUM [Concomitant]
     Dosage: 10 MG, 1X/DAY
  14. LINZESS [Concomitant]
     Dosage: 145 UG, UNK

REACTIONS (2)
  - Cerebrovascular accident [Unknown]
  - Myocardial infarction [Unknown]
